FAERS Safety Report 9905520 (Version 3)
Quarter: 2015Q3

REPORT INFORMATION
  Report Type: Spontaneous
  Country: US (occurrence: US)
  Receive Date: 20140218
  Receipt Date: 20150811
  Transmission Date: 20151125
  Serious: No
  Sender: FDA-Public Use
  Company Number: US-GILEAD-2012-0048708

PATIENT
  Age: 64 Year
  Sex: Male

DRUGS (2)
  1. LETAIRIS [Suspect]
     Active Substance: AMBRISENTAN
     Indication: PORTOPULMONARY HYPERTENSION
     Dosage: 5 MG, UNK
     Route: 048
     Dates: start: 20111219, end: 20111224
  2. LASIX [Concomitant]
     Active Substance: FUROSEMIDE

REACTIONS (6)
  - Constipation [Not Recovered/Not Resolved]
  - Peripheral swelling [Recovering/Resolving]
  - Rash [Not Recovered/Not Resolved]
  - Dyspnoea [Recovering/Resolving]
  - Headache [Not Recovered/Not Resolved]
  - Oedema peripheral [Recovering/Resolving]

NARRATIVE: CASE EVENT DATE: 201112
